FAERS Safety Report 4277149-X (Version None)
Quarter: 2004Q1

REPORT INFORMATION
  Report Type: 
  Country: None (occurrence: None)
  Receive Date: 20040120
  Receipt Date: 20040109
  Transmission Date: 20041129
  Serious: Yes (Death)
  Sender: FDA-Public Use
  Company Number: 7112

PATIENT
  Sex: Male

DRUGS (1)
  1. METHOTREXATE [Suspect]
     Dosage: 40 MG WEEKLY
     Route: 048

REACTIONS (3)
  - BONE MARROW DEPRESSION [None]
  - MEDICATION ERROR [None]
  - THERAPEUTIC RESPONSE INCREASED [None]
